FAERS Safety Report 18457674 (Version 1)
Quarter: 2020Q4

REPORT INFORMATION
  Report Type: Spontaneous
  Country: ES (occurrence: ES)
  Receive Date: 20201103
  Receipt Date: 20201103
  Transmission Date: 20210114
  Serious: Yes (Hospitalization, Other)
  Sender: FDA-Public Use
  Company Number: ES-MACLEODS PHARMACEUTICALS US LTD-MAC2020028852

PATIENT

DRUGS (6)
  1. TOPIRAMATE. [Concomitant]
     Active Substance: TOPIRAMATE
     Indication: PRODUCT USED FOR UNKNOWN INDICATION
     Dosage: 50 MILLIGRAM, TID (8 HRS)
     Route: 065
  2. QUETIAPINE 200 MG [Suspect]
     Active Substance: QUETIAPINE
     Indication: AGGRESSION
     Dosage: 200 MILLIGRAM
     Route: 048
  3. RISPERIDONE. [Concomitant]
     Active Substance: RISPERIDONE
     Indication: PRODUCT USED FOR UNKNOWN INDICATION
     Dosage: 1 MILLIGRAM, BID (12 HOURS)
     Route: 065
  4. BIPERIDENE RETARD [Concomitant]
     Active Substance: BIPERIDEN
     Indication: PRODUCT USED FOR UNKNOWN INDICATION
     Dosage: 4 MILLIGRAM, QD (24 HRS)
     Route: 065
  5. FLURAZEPAM [Concomitant]
     Active Substance: FLURAZEPAM HYDROCHLORIDE
     Indication: PRODUCT USED FOR UNKNOWN INDICATION
     Dosage: 30 MILLIGRAM, QD (24 HRS)
     Route: 065
  6. RIVOTRIL [Concomitant]
     Active Substance: CLONAZEPAM
     Indication: PRODUCT USED FOR UNKNOWN INDICATION
     Dosage: 6.5 MILLIGRAM, QD (6.5 MG / 24 HOURS, DIVIDED INTO 4 DOSES)
     Route: 048

REACTIONS (2)
  - Rhabdomyolysis [Unknown]
  - Sinus bradycardia [Unknown]
